FAERS Safety Report 4650147-X (Version None)
Quarter: 2005Q2

REPORT INFORMATION
  Report Type: 
  Country: None (occurrence: None)
  Receive Date: 20050502
  Receipt Date: 20050426
  Transmission Date: 20051028
  Serious: Yes (Life-Threatening, Hospitalization)
  Sender: FDA-Public Use
  Company Number: JP-BRISTOL-MYERS SQUIBB COMPANY-12947487

PATIENT
  Age: 55 Year
  Sex: Female

DRUGS (1)
  1. PARAPLATIN [Suspect]
     Indication: TONGUE NEOPLASM MALIGNANT STAGE UNSPECIFIED
     Route: 042
     Dates: start: 20040623, end: 20040623

REACTIONS (2)
  - NECROSIS [None]
  - PHARYNGEAL OEDEMA [None]
